FAERS Safety Report 8919870 (Version 6)
Quarter: 2018Q2

REPORT INFORMATION
  Report Type: Spontaneous
  Country: US (occurrence: US)
  Receive Date: 20121121
  Receipt Date: 20180618
  Transmission Date: 20180711
  Serious: Yes (Hospitalization, Disabling, Other)
  Sender: FDA-Public Use
  Company Number: US-009507513-1211USA008062

PATIENT
  Sex: Female
  Weight: 79.82 kg

DRUGS (4)
  1. FOSAMAX [Suspect]
     Active Substance: ALENDRONATE SODIUM
     Indication: BONE LOSS
     Dosage: 70 MG, QW
     Route: 048
     Dates: start: 2002, end: 2009
  2. FOSAMAX PLUS D [Suspect]
     Active Substance: ALENDRONATE SODIUM\CHOLECALCIFEROL
     Indication: PRODUCT USED FOR UNKNOWN INDICATION
     Route: 048
  3. BONIVA [Suspect]
     Active Substance: IBANDRONATE SODIUM
     Indication: BONE LOSS
     Dosage: 150 MG, UNK
     Route: 065
     Dates: start: 2009
  4. ALENDRONATE SODIUM. [Suspect]
     Active Substance: ALENDRONATE SODIUM
     Indication: OSTEOPOROSIS
     Dosage: UNK
     Route: 048
     Dates: start: 2002, end: 2009

REACTIONS (39)
  - Low turnover osteopathy [Not Recovered/Not Resolved]
  - Post laminectomy syndrome [Not Recovered/Not Resolved]
  - Sacroiliitis [Unknown]
  - Fall [Unknown]
  - Open reduction of fracture [Unknown]
  - Device failure [Unknown]
  - Tooth extraction [Unknown]
  - Fracture [Unknown]
  - Hypertension [Not Recovered/Not Resolved]
  - Intervertebral disc protrusion [Not Recovered/Not Resolved]
  - Musculoskeletal pain [Unknown]
  - Tibia fracture [Not Recovered/Not Resolved]
  - Fall [Unknown]
  - Fracture delayed union [Unknown]
  - Depression [Unknown]
  - Anxiety [Unknown]
  - Femur fracture [Not Recovered/Not Resolved]
  - Lumbar radiculopathy [Not Recovered/Not Resolved]
  - Spinal disorder [Unknown]
  - Femur fracture [Unknown]
  - Humerus fracture [Unknown]
  - Femur fracture [Not Recovered/Not Resolved]
  - Femur fracture [Not Recovered/Not Resolved]
  - Spinal fracture [Not Recovered/Not Resolved]
  - Dizziness [Unknown]
  - Vertigo [Unknown]
  - Humerus fracture [Recovering/Resolving]
  - Transfusion [Unknown]
  - Back pain [Not Recovered/Not Resolved]
  - Anaemia [Unknown]
  - Muscular weakness [Unknown]
  - Osteoporosis [Not Recovered/Not Resolved]
  - Stress fracture [Not Recovered/Not Resolved]
  - Tonsillectomy [Unknown]
  - Fibula fracture [Unknown]
  - Arthralgia [Not Recovered/Not Resolved]
  - Tinnitus [Unknown]
  - Hypothyroidism [Unknown]
  - Dyslipidaemia [Unknown]

NARRATIVE: CASE EVENT DATE: 2004
